FAERS Safety Report 10705085 (Version 2)
Quarter: 2015Q1

REPORT INFORMATION
  Report Type: Spontaneous
  Country: US (occurrence: None)
  Receive Date: 20150108
  Receipt Date: 20150130
  Transmission Date: 20150721
  Serious: Yes (Hospitalization)
  Sender: FDA-Public Use
  Company Number: 2014-US-017333

PATIENT
  Age: 65 Year
  Sex: Male

DRUGS (13)
  1. LORAZEPAM. [Concomitant]
     Active Substance: LORAZEPAM
  2. HYDROCHLOROTHIAZIDE. [Concomitant]
     Active Substance: HYDROCHLOROTHIAZIDE
  3. IBUPROFEN. [Concomitant]
     Active Substance: IBUPROFEN
  4. ASPIRIN (ACETYLSALICYLIC ACID) [Concomitant]
     Active Substance: ASPIRIN
  5. LOSARTAN (PLOSARTAN POTASSIUM) [Concomitant]
  6. TRAZOLDONE [Concomitant]
  7. XYREM [Suspect]
     Active Substance: SODIUM OXYBATE
     Indication: NARCOLEPSY
     Route: 048
     Dates: start: 201412, end: 20141227
  8. VIAGRA [Concomitant]
     Active Substance: SILDENAFIL CITRATE
  9. OMEPRAZOLE. [Concomitant]
     Active Substance: OMEPRAZOLE
  10. ADBAIR (FLUTICASONE PROPIONATE, SALMETEROL XINAFOATE) [Concomitant]
  11. MODATINIL [Concomitant]
  12. PROAIR (FLUTICSONE PROPIONATE) [Concomitant]
  13. ZOLOFT [Concomitant]
     Active Substance: SERTRALINE HYDROCHLORIDE

REACTIONS (3)
  - Chronic obstructive pulmonary disease [None]
  - Nervous system disorder [None]
  - Tremor [None]

NARRATIVE: CASE EVENT DATE: 201412
